FAERS Safety Report 9608614 (Version 2)
Quarter: 2013Q4

REPORT INFORMATION
  Report Type: Spontaneous
  Country: US (occurrence: US)
  Receive Date: 20131009
  Receipt Date: 20131108
  Transmission Date: 20140711
  Serious: Yes (Other)
  Sender: FDA-Public Use
  Company Number: US-PFIZER INC-2013286599

PATIENT
  Age: 78 Year
  Sex: Female
  Weight: 70 kg

DRUGS (2)
  1. AROMASIN [Suspect]
     Indication: BREAST CANCER
     Dosage: 25 MG, 1X/DAY
     Route: 048
     Dates: start: 201306
  2. ANTIVERT [Concomitant]
     Indication: DIZZINESS
     Dosage: UNK

REACTIONS (3)
  - Hypertension [Unknown]
  - Oedema peripheral [Unknown]
  - Joint swelling [Unknown]
